FAERS Safety Report 5190887-X (Version None)
Quarter: 2006Q4

REPORT INFORMATION
  Report Type: 
  Country: None (occurrence: None)
  Receive Date: 20061222
  Receipt Date: 20061031
  Transmission Date: 20070319
  Serious: Yes (Death, Hospitalization)
  Sender: FDA-Public Use
  Company Number: US-ELI_LILLY_AND_COMPANY-US200611000051

PATIENT
  Age: 55 Year
  Sex: Female
  Weight: 43.083 kg

DRUGS (6)
  1. ZYPREXA [Suspect]
     Indication: DEMENTIA
     Dosage: 2.5 MG, UNKNOWN
     Dates: start: 20021112
  2. DEPAKOTE [Concomitant]
     Dosage: UNK, UNKNOWN
     Dates: end: 20041116
  3. REMERON [Concomitant]
     Dates: start: 20021126, end: 20041124
  4. ZOLOFT [Concomitant]
     Dosage: UNK, UNKNOWN
     Dates: start: 20021031, end: 20030602
  5. PREDNISONE TAB [Concomitant]
     Dosage: UNK, UNKNOWN
     Dates: start: 20021102, end: 20040120
  6. ARISTOCORT [Concomitant]
     Dosage: UNK, UNKNOWN
     Dates: start: 20040826, end: 20041218

REACTIONS (2)
  - ACUTE MYOCARDIAL INFARCTION [None]
  - HYPERTENSION [None]
